FAERS Safety Report 15717676 (Version 1)
Quarter: 2018Q4

REPORT INFORMATION
  Report Type: Spontaneous
  Country: US (occurrence: US)
  Receive Date: 20181213
  Receipt Date: 20181213
  Transmission Date: 20190205
  Serious: No
  Sender: FDA-Public Use
  Company Number: US-ASTELLAS-2018US020868

PATIENT
  Sex: Female

DRUGS (1)
  1. TARCEVA [Suspect]
     Active Substance: ERLOTINIB HYDROCHLORIDE
     Indication: LUNG NEOPLASM MALIGNANT
     Dosage: 150 MG, ONCE DAILY(1 HR BEFORE OR 2 HRS AFTER FOOD)
     Route: 048
     Dates: start: 20170602

REACTIONS (2)
  - Rash [Recovered/Resolved]
  - Diarrhoea [Recovered/Resolved]
